FAERS Safety Report 7427900-2 (Version None)
Quarter: 2011Q2

REPORT INFORMATION
  Report Type: 
  Country: None (occurrence: None)
  Receive Date: 20110418
  Receipt Date: 20110418
  Transmission Date: 20111010
  Serious: Yes (Hospitalization)
  Sender: FDA-Public Use
  Company Number: None

PATIENT
  Age: 52 Year
  Sex: Female

DRUGS (1)
  1. TYSABRI [Suspect]
     Indication: MULTIPLE SCLEROSIS
     Dosage: 300 MG MONTHLY IV DRIP
     Route: 041
     Dates: start: 20101001, end: 20110228

REACTIONS (10)
  - CEREBRAL HAEMORRHAGE [None]
  - DEPRESSION [None]
  - KETONURIA [None]
  - URINARY TRACT INFECTION BACTERIAL [None]
  - MALAISE [None]
  - APHASIA [None]
  - CONFUSIONAL STATE [None]
  - HEMIPARESIS [None]
  - SPEECH DISORDER [None]
  - FLAT AFFECT [None]
